FAERS Safety Report 8942196 (Version 1)
Quarter: 2012Q4

REPORT INFORMATION
  Report Type: Spontaneous
  Country: US (occurrence: None)
  Receive Date: 20121129
  Receipt Date: 20121129
  Transmission Date: 20130627
  Serious: Yes (Other)
  Sender: FDA-Public Use
  Company Number: None

PATIENT
  Age: 53 Year
  Sex: Female
  Weight: 87.09 kg

DRUGS (4)
  1. LEVETIRACETAM [Suspect]
     Indication: CONVULSION PROPHYLAXIS
     Route: 048
     Dates: start: 20120321, end: 20121105
  2. CENTRUM SILVER [Concomitant]
  3. VITAMIN C [Concomitant]
  4. VIT D3 [Concomitant]

REACTIONS (5)
  - Pyrexia [None]
  - Stevens-Johnson syndrome [None]
  - Arthralgia [None]
  - Dry eye [None]
  - Muscle spasms [None]
